FAERS Safety Report 7321503-6 (Version None)
Quarter: 2011Q1

REPORT INFORMATION
  Report Type: 
  Country: None (occurrence: None)
  Receive Date: 20110223
  Receipt Date: 20110223
  Transmission Date: 20110831
  Serious: Yes (Hospitalization)
  Sender: FDA-Public Use
  Company Number: None

PATIENT
  Sex: Female
  Weight: 66.3 kg

DRUGS (2)
  1. ETOPOSIDE [Suspect]
     Dosage: 519 MG
     Dates: end: 20110202
  2. CISPLATIN [Suspect]
     Dosage: 130 MG
     Dates: end: 20110131

REACTIONS (3)
  - DEHYDRATION [None]
  - VOMITING [None]
  - RENAL FAILURE ACUTE [None]
